FAERS Safety Report 9338384 (Version 1)
Quarter: 2013Q2

REPORT INFORMATION
  Report Type: Spontaneous
  Country: US (occurrence: US)
  Receive Date: 20130610
  Receipt Date: 20130610
  Transmission Date: 20140414
  Serious: No
  Sender: FDA-Public Use
  Company Number: US-PFIZER INC-2013172948

PATIENT
  Age: 70 Year
  Sex: Female
  Weight: 47.17 kg

DRUGS (2)
  1. CELEBREX [Suspect]
     Indication: ARTHRITIS
     Dosage: 200 MG, 1X/DAY
  2. WELLBUTRIN [Concomitant]
     Indication: ANXIETY
     Dosage: UNK

REACTIONS (2)
  - Bronchitis [Recovering/Resolving]
  - Malaise [Recovering/Resolving]
